FAERS Safety Report 9904854 (Version 4)
Quarter: 2014Q3

REPORT INFORMATION
  Report Type: Spontaneous
  Country: US (occurrence: US)
  Receive Date: 20140218
  Receipt Date: 20140818
  Transmission Date: 20150326
  Serious: Yes (Other)
  Sender: FDA-Public Use
  Company Number: US-PFIZER INC-2014041323

PATIENT
  Age: 60 Year
  Sex: Female

DRUGS (3)
  1. CENTRUM MULTIVITAMIN A-Z [Concomitant]
     Dosage: UNK
     Dates: start: 2001
  2. LIPITOR [Suspect]
     Active Substance: ATORVASTATIN CALCIUM
     Indication: CARDIOVASCULAR EVENT PROPHYLAXIS
  3. LIPITOR [Suspect]
     Active Substance: ATORVASTATIN CALCIUM
     Indication: LOW DENSITY LIPOPROTEIN INCREASED
     Dosage: 10 MG, DAILY
     Route: 048
     Dates: start: 20081028, end: 20111115

REACTIONS (9)
  - Kidney infection [Unknown]
  - Neuropathy peripheral [Unknown]
  - Cerebrovascular accident [Unknown]
  - Diabetic vascular disorder [Unknown]
  - Visual impairment [Unknown]
  - Type 2 diabetes mellitus [Not Recovered/Not Resolved]
  - Intermittent claudication [Not Recovered/Not Resolved]
  - Cardiac disorder [Unknown]
  - Fatigue [Unknown]

NARRATIVE: CASE EVENT DATE: 20110117
